FAERS Safety Report 14612163 (Version 1)
Quarter: 2018Q1

REPORT INFORMATION
  Report Type: Spontaneous
  Country: US (occurrence: US)
  Receive Date: 20180307
  Receipt Date: 20180307
  Transmission Date: 20180509
  Serious: Yes (Other)
  Sender: FDA-Public Use
  Company Number: None

PATIENT
  Age: 56 Year
  Sex: Female
  Weight: 72 kg

DRUGS (4)
  1. AMLODIPINE [Suspect]
     Active Substance: AMLODIPINE BESYLATE
     Indication: HYPERTENSION
     Route: 048
     Dates: start: 20180211, end: 20180216
  2. VALSARTAN 320MG 1 TABLET A DAY [Concomitant]
     Dates: start: 20161129
  3. METOPROLOL ER 50MG 3 TABLETS AT BEDTIME [Concomitant]
     Dates: start: 20161018
  4. POTASSIUM CHLORIDE ER 20MEQ TAB 1 TABLET TWICE A DAY [Concomitant]
     Dates: start: 20170902

REACTIONS (4)
  - Headache [None]
  - Flushing [None]
  - Blood pressure increased [None]
  - Dizziness [None]

NARRATIVE: CASE EVENT DATE: 20180211
